FAERS Safety Report 9643169 (Version 1)
Quarter: 2013Q4

REPORT INFORMATION
  Report Type: Spontaneous
  Country: DE (occurrence: DE)
  Receive Date: 20131024
  Receipt Date: 20131024
  Transmission Date: 20140711
  Serious: Yes (Other)
  Sender: FDA-Public Use
  Company Number: PHHY2013DE119607

PATIENT
  Age: 68 Year
  Sex: Male

DRUGS (1)
  1. VOLTAREN RESINAT 20 KAP [Suspect]
     Indication: PSORIATIC ARTHROPATHY
     Dosage: 1 DF,  (UPTO 5 TIMES DAILY)
     Route: 048
     Dates: start: 1983

REACTIONS (4)
  - Post procedural complication [Unknown]
  - General physical health deterioration [Unknown]
  - Body temperature increased [Unknown]
  - Overdose [Unknown]
